FAERS Safety Report 9338866 (Version 3)
Quarter: 2014Q1

REPORT INFORMATION
  Report Type: Report from Study
  Country: GB (occurrence: GB)
  Receive Date: 20130610
  Receipt Date: 20140212
  Transmission Date: 20141002
  Serious: Yes (Hospitalization)
  Sender: FDA-Public Use
  Company Number: GB-VERTEX PHARMACEUTICALS INC.-2013-003380

PATIENT
  Age: 64 Year
  Sex: Male
  Weight: 88.8 kg

DRUGS (15)
  1. VX-222 [Suspect]
     Indication: HEPATITIS C
     Dosage: 400 MG, BID
     Route: 048
     Dates: start: 20121231, end: 20130224
  2. VX-950 (TELAPREVIR) [Suspect]
     Indication: HEPATITIS C
     Dosage: 1125 MG, UNK
     Route: 048
     Dates: start: 20121231, end: 20130224
  3. Z-RIBAVIRIN [Suspect]
     Indication: HEPATITIS C
     Dosage: 1200 MG, BID
     Route: 048
     Dates: start: 20121231, end: 20130224
  4. Z-PEGYLATED INTERFERON-2A [Suspect]
     Indication: HEPATITIS C
     Dosage: 180 ?G, QW
     Route: 058
     Dates: start: 20121231, end: 20130218
  5. BISOPROLOL [Concomitant]
     Indication: HYPERTENSION
     Dosage: 1.25 MG, QD
  6. CO-AMILOFRUSE [Concomitant]
     Indication: HYPERTENSION
     Dosage: 5/40 MG, 2 TABLETS DAILY
  7. LISINOPRIL [Concomitant]
     Indication: HYPERTENSION
     Dosage: 2.5 MG, QW
  8. CITALOPRAM [Concomitant]
     Indication: DEPRESSION
     Dosage: 10 MG, UNK
  9. METFORMIN [Concomitant]
     Indication: DIABETES MELLITUS
     Dosage: 500 MG, UNK
     Dates: start: 20130226, end: 20130311
  10. SIMVASTATIN [Concomitant]
     Dosage: 40 MG, UNK
     Dates: start: 20130226, end: 20130311
  11. LACTULOSE [Concomitant]
     Indication: CONSTIPATION
     Dosage: 10 ML, BID
     Dates: start: 20130304
  12. FUROSEMIDE [Concomitant]
     Indication: ASCITES
     Dosage: 40 MG, BID
  13. AMILORIDE [Concomitant]
     Indication: ASCITES
     Dosage: 10 MG, UNK
  14. CARVEDIOL [Concomitant]
     Indication: HYPERTENSION
     Dosage: 12.5 MG, QD
  15. INSULIN [Concomitant]
     Indication: DIABETES MELLITUS
     Dosage: 28 UT, QD

REACTIONS (3)
  - Hepatic cirrhosis [Not Recovered/Not Resolved]
  - Abdominal pain [Recovered/Resolved]
  - Vomiting [Recovered/Resolved]
